FAERS Safety Report 7465516-2 (Version None)
Quarter: 2011Q2

REPORT INFORMATION
  Report Type: 
  Country: None (occurrence: None)
  Receive Date: 20110509
  Receipt Date: 20110429
  Transmission Date: 20111010
  Serious: Yes (Hospitalization, Other)
  Sender: FDA-Public Use
  Company Number: FR-PFIZER INC-2011092488

PATIENT
  Age: 44 Year
  Sex: Male

DRUGS (2)
  1. SIROLIMUS [Suspect]
     Dosage: 4 MG, UNK
     Route: 048
     Dates: start: 20060104, end: 20060303
  2. SIROLIMUS [Suspect]
     Indication: IMMUNOSUPPRESSANT DRUG THERAPY
     Dosage: UNK
     Dates: start: 20041204, end: 20060104

REACTIONS (3)
  - PROSTHESIS IMPLANTATION [None]
  - POSTOPERATIVE WOUND COMPLICATION [None]
  - WOUND EVISCERATION [None]
